FAERS Safety Report 15439499 (Version 3)
Quarter: 2018Q4

REPORT INFORMATION
  Report Type: Spontaneous
  Country: US (occurrence: US)
  Receive Date: 20180928
  Receipt Date: 20181218
  Transmission Date: 20190204
  Serious: No
  Sender: FDA-Public Use
  Company Number: US-GILEAD-2018-0365467

PATIENT
  Age: 61 Year
  Sex: Male
  Weight: 72.13 kg

DRUGS (7)
  1. BIKTARVY [Suspect]
     Active Substance: BICTEGRAVIR SODIUM\EMTRICITABINE\TENOFOVIR ALAFENAMIDE FUMARATE
     Indication: PRODUCT USED FOR UNKNOWN INDICATION
     Route: 065
  2. MOBIC [Concomitant]
     Active Substance: MELOXICAM
  3. MEGESTROL [Concomitant]
     Active Substance: MEGESTROL
  4. KEFLEX [Concomitant]
     Active Substance: CEPHALEXIN
  5. TESTOSTERONE. [Concomitant]
     Active Substance: TESTOSTERONE
  6. VASCEPA [Concomitant]
     Active Substance: ICOSAPENT ETHYL
  7. GENVOYA [Suspect]
     Active Substance: COBICISTAT\ELVITEGRAVIR\EMTRICITABINE\TENOFOVIR ALAFENAMIDE FUMARATE
     Indication: PRODUCT USED FOR UNKNOWN INDICATION
     Dosage: 1 DF, QD
     Route: 048
     Dates: start: 20181211

REACTIONS (2)
  - Muscular weakness [Recovered/Resolved]
  - Headache [Recovered/Resolved]
